FAERS Safety Report 21587050 (Version 1)
Quarter: 2022Q4

REPORT INFORMATION
  Report Type: Spontaneous
  Country: NL (occurrence: NL)
  Receive Date: 20221114
  Receipt Date: 20221114
  Transmission Date: 20230113
  Serious: Yes (Other)
  Sender: FDA-Public Use
  Company Number: NL-BoehringerIngelheim-2022-BI-201549

PATIENT
  Age: 75 Year
  Sex: Male
  Weight: 49 kg

DRUGS (1)
  1. OFEV [Suspect]
     Active Substance: NINTEDANIB
     Indication: Idiopathic pulmonary fibrosis
     Dates: start: 2019

REACTIONS (5)
  - Non-small cell lung cancer [Unknown]
  - Diarrhoea [Unknown]
  - Insomnia [Unknown]
  - Cough [Unknown]
  - Weight decreased [Unknown]

NARRATIVE: CASE EVENT DATE: 20210101
